FAERS Safety Report 6956786-5 (Version None)
Quarter: 2010Q3

REPORT INFORMATION
  Report Type: 
  Country: None (occurrence: None)
  Receive Date: 20100830
  Receipt Date: 20100818
  Transmission Date: 20110219
  Serious: Yes (Other)
  Sender: FDA-Public Use
  Company Number: PHHY2010DE31843

PATIENT
  Sex: Female

DRUGS (3)
  1. ZOMETA [Suspect]
     Indication: BREAST CANCER
     Dosage: UNK
     Dates: start: 20060301, end: 20080201
  2. ZOLEDRONIC [Suspect]
     Dosage: UNK
     Route: 042
     Dates: start: 20091001, end: 20091001
  3. ARIMIDEX [Concomitant]

REACTIONS (3)
  - INFLAMMATORY MARKER INCREASED [None]
  - OSTEITIS [None]
  - TOOTH EXTRACTION [None]
